FAERS Safety Report 7866763-8 (Version None)
Quarter: 2011Q4

REPORT INFORMATION
  Report Type: 
  Country: None (occurrence: None)
  Receive Date: 20111028
  Receipt Date: 20110815
  Transmission Date: 20120403
  Serious: No
  Sender: FDA-Public Use
  Company Number: US-GLAXOSMITHKLINE-A0941089A

PATIENT
  Age: 69 Year
  Sex: Female

DRUGS (10)
  1. ALBUTEROL [Concomitant]
  2. HYDROCHLOROTHIAZIDE [Concomitant]
  3. ALBUTEROL [Concomitant]
  4. CAPTOPRIL [Concomitant]
  5. FELODIPINE [Concomitant]
  6. ADVAIR DISKUS 100/50 [Suspect]
     Indication: ASTHMA
     Dosage: 1PUFF TWICE PER DAY
     Route: 055
     Dates: start: 20100801
  7. OMEPRAZOLE [Concomitant]
  8. OXYGEN [Concomitant]
  9. IBUPROFEN (ADVIL) [Concomitant]
  10. ASPIRIN [Concomitant]

REACTIONS (1)
  - MYALGIA [None]
